FAERS Safety Report 23715972 (Version 1)
Quarter: 2024Q2

REPORT INFORMATION
  Report Type: Spontaneous
  Country: CN (occurrence: CN)
  Receive Date: 20240408
  Receipt Date: 20240408
  Transmission Date: 20240716
  Serious: Yes (Hospitalization)
  Sender: FDA-Public Use
  Company Number: CN-NOVOPROD-1197158

PATIENT
  Age: 40 Year
  Sex: Male
  Weight: 65 kg

DRUGS (4)
  1. INSULIN ASPART\INSULIN DEGLUDEC [Suspect]
     Active Substance: INSULIN ASPART\INSULIN DEGLUDEC
     Indication: Latent autoimmune diabetes in adults
     Dosage: 16-17 U IN THE MORNING, QD
     Dates: start: 202211
  2. NOVORAPID [Suspect]
     Active Substance: INSULIN ASPART
     Indication: Latent autoimmune diabetes in adults
     Dosage: 10 IU, QD (BEFORE SUPPER)
     Dates: start: 202211
  3. GLUCOBAY [Concomitant]
     Active Substance: ACARBOSE
     Indication: Latent autoimmune diabetes in adults
     Dosage: 1 DF (IF THE PATIENT EATS STAPLE FOOD)
     Route: 048
  4. THIOCTIC ACID [Concomitant]
     Active Substance: THIOCTIC ACID
     Indication: Product used for unknown indication
     Dosage: 1 DF, QD

REACTIONS (3)
  - Limb discomfort [Recovered/Resolved]
  - Hypoglycaemia [Unknown]
  - Product use in unapproved indication [Unknown]

NARRATIVE: CASE EVENT DATE: 20221101
